FAERS Safety Report 4355388-7 (Version None)
Quarter: 2004Q2

REPORT INFORMATION
  Report Type: 
  Country: None (occurrence: None)
  Receive Date: 20040505
  Receipt Date: 20040427
  Transmission Date: 20050107
  Serious: Yes (Death, Other)
  Sender: FDA-Public Use
  Company Number: 2004210879JP

PATIENT
  Age: 59 Year
  Sex: Male

DRUGS (1)
  1. HEPARIN SODIUM [Suspect]
     Indication: PROPHYLAXIS
     Dosage: SEE IMAGE
     Route: 042

REACTIONS (13)
  - ABDOMINAL PAIN [None]
  - ABNORMAL FAECES [None]
  - ANURIA [None]
  - AORTIC THROMBOSIS [None]
  - FAT EMBOLISM [None]
  - GASTROINTESTINAL NECROSIS [None]
  - HAEMATOCHEZIA [None]
  - HAEMODIALYSIS [None]
  - LIVEDO RETICULARIS [None]
  - PALLOR [None]
  - POST PROCEDURAL COMPLICATION [None]
  - POST PROCEDURAL DISCHARGE [None]
  - ULCER [None]
